FAERS Safety Report 4536601-X (Version None)
Quarter: 2004Q4

REPORT INFORMATION
  Report Type: 
  Country: None (occurrence: None)
  Receive Date: 20041223
  Receipt Date: 20041215
  Transmission Date: 20050328
  Serious: Yes (Other)
  Sender: FDA-Public Use
  Company Number: JP-BRISTOL-MYERS SQUIBB COMPANY-12803961

PATIENT
  Age: 48 Year
  Sex: Male

DRUGS (4)
  1. STOCRIN CAPS [Suspect]
     Indication: HIV INFECTION
     Route: 048
  2. INVIRASE [Concomitant]
  3. NORVIR [Concomitant]
  4. ZIAGEN [Concomitant]

REACTIONS (1)
  - MYOCARDIAL INFARCTION [None]
